FAERS Safety Report 8300142-4 (Version None)
Quarter: 2012Q2

REPORT INFORMATION
  Report Type: 
  Country: None (occurrence: None)
  Receive Date: 20120417
  Receipt Date: 20120417
  Transmission Date: 20120825
  Serious: No
  Sender: FDA-Public Use
  Company Number: 2012SP018268

PATIENT
  Age: 1 Month
  Sex: Male

DRUGS (1)
  1. CEDAX [Suspect]

REACTIONS (1)
  - INCORRECT STORAGE OF DRUG [None]
